FAERS Safety Report 5451047-8 (Version None)
Quarter: 2007Q3

REPORT INFORMATION
  Report Type: 
  Country: None (occurrence: None)
  Receive Date: 20070801
  Receipt Date: 20070524
  Transmission Date: 20080115
  Serious: Yes (Hospitalization)
  Sender: FDA-Public Use
  Company Number: US-JNJFOC-20060902394

PATIENT
  Age: 24 Month
  Sex: Female
  Weight: 11.8 kg

DRUGS (1)
  1. CHILDREN'S MOTRIN [Suspect]
     Indication: DRUG USE FOR UNKNOWN INDICATION
     Dosage: X 2 DAYS

REACTIONS (1)
  - TOXIC EPIDERMAL NECROLYSIS [None]
